FAERS Safety Report 9624567 (Version 1)
Quarter: 2013Q4

REPORT INFORMATION
  Report Type: Spontaneous
  Country: AU (occurrence: AU)
  Receive Date: 20131015
  Receipt Date: 20131015
  Transmission Date: 20140711
  Serious: Yes (Other)
  Sender: FDA-Public Use
  Company Number: AU-ABBVIE-13P-008-1157757-00

PATIENT
  Sex: Male

DRUGS (4)
  1. EPILIM [Suspect]
     Indication: PRODUCT USED FOR UNKNOWN INDICATION
  2. CARBAMAZEPINE [Concomitant]
     Indication: PRODUCT USED FOR UNKNOWN INDICATION
  3. CLONAZEPAM [Concomitant]
     Indication: PRODUCT USED FOR UNKNOWN INDICATION
  4. PHENYTOIN SODIUM [Concomitant]
     Indication: PRODUCT USED FOR UNKNOWN INDICATION

REACTIONS (8)
  - Renal impairment [Unknown]
  - Convulsion [Unknown]
  - Hepatomegaly [Unknown]
  - Ataxia [Unknown]
  - Hepatic function abnormal [Unknown]
  - Jaundice [Unknown]
  - Nausea [Unknown]
  - Vomiting [Unknown]
